FAERS Safety Report 4913653-6 (Version None)
Quarter: 2006Q1

REPORT INFORMATION
  Report Type: 
  Country: None (occurrence: None)
  Receive Date: 20060216
  Receipt Date: 20060209
  Transmission Date: 20060701
  Serious: Yes (Other)
  Sender: FDA-Public Use
  Company Number: US-JNJFOC-20060202907

PATIENT
  Sex: Female

DRUGS (1)
  1. ORTHO EVRA [Suspect]
     Indication: CONTRACEPTION
     Route: 062
     Dates: start: 20030701, end: 20051201

REACTIONS (2)
  - BIPOLAR DISORDER [None]
  - SCHIZOPHRENIA [None]
